FAERS Safety Report 19959021 (Version 1)
Quarter: 2021Q4

REPORT INFORMATION
  Report Type: Spontaneous
  Country: SI (occurrence: SI)
  Receive Date: 20211015
  Receipt Date: 20211015
  Transmission Date: 20220303
  Serious: Yes (Other)
  Sender: FDA-Public Use
  Company Number: SI-BOEHRINGERINGELHEIM-2021-BI-128228

PATIENT
  Age: 66 Year
  Sex: Female

DRUGS (16)
  1. ALPRAZOLAM [Suspect]
     Active Substance: ALPRAZOLAM
     Dosage: UNK
  2. SPIRIVA [Suspect]
     Active Substance: TIOTROPIUM BROMIDE MONOHYDRATE
     Dosage: 18 UG, ONCE A DAY
  3. ZOLPIDEM TARTRATE [Suspect]
     Active Substance: ZOLPIDEM TARTRATE
     Dosage: UNK
  4. LORAZEPAM [Suspect]
     Active Substance: LORAZEPAM
     Dosage: 1 MG, DAILY (ALSO REPORTED AS 1-3X1 DAILY)
  5. MORPHINE [Suspect]
     Active Substance: MORPHINE
     Dosage: UNK
  6. ZALDIAR [Suspect]
     Active Substance: ACETAMINOPHEN\TRAMADOL HYDROCHLORIDE
     Dosage: UNK
  7. QUETIAPINE [Concomitant]
     Active Substance: QUETIAPINE
     Dosage: 25 MG, 1X/DAY
  8. REGLAN [Concomitant]
     Active Substance: METOCLOPRAMIDE HYDROCHLORIDE
     Dosage: 10 MG, FREQ: 8 H
  9. ACETAMINOPHEN [Concomitant]
     Active Substance: ACETAMINOPHEN
     Dosage: 500 MG 2-3 TABLETS AS REQUIRED
  10. FENOTEROL HYDROBROMIDE\IPRATROPIUM BROMIDE [Concomitant]
     Active Substance: FENOTEROL HYDROBROMIDE\IPRATROPIUM BROMIDE
     Dosage: UNK
  11. PROLIA [Concomitant]
     Active Substance: DENOSUMAB
     Dosage: 60 MG; FREQ:.5 A
  12. MIRTAZAPINE [Concomitant]
     Active Substance: MIRTAZAPINE
     Dosage: 45 MG, 1X/DAY
  13. OXYGEN [Concomitant]
     Active Substance: OXYGEN
     Dosage: 1L/MINUTE 24 HOURS A DAY
  14. CHOLECALCIFEROL [Concomitant]
     Active Substance: CHOLECALCIFEROL
     Dosage: 14000 IU, WEEKLY
  15. LACTECON [Concomitant]
     Dosage: UNK
  16. ULTOP [OMEPRAZOLE] [Concomitant]
     Dosage: 20 MG, 1X/DAY

REACTIONS (15)
  - Respiratory depression [Unknown]
  - Chronic obstructive pulmonary disease [Unknown]
  - Dependence [Unknown]
  - Drug tolerance [Unknown]
  - Musculoskeletal chest pain [Unknown]
  - Loss of personal independence in daily activities [Unknown]
  - Sedation [Unknown]
  - Anxiety [Unknown]
  - Abdominal distension [Unknown]
  - Nausea [Unknown]
  - Cough [Unknown]
  - Dyspnoea [Unknown]
  - Alanine aminotransferase decreased [Unknown]
  - Aspartate aminotransferase decreased [Unknown]
  - Glomerular filtration rate decreased [Unknown]

NARRATIVE: CASE EVENT DATE: 20170301
